FAERS Safety Report 5598573-9 (Version None)
Quarter: 2008Q1

REPORT INFORMATION
  Report Type: 
  Country: None (occurrence: None)
  Receive Date: 20080122
  Receipt Date: 20080116
  Transmission Date: 20080703
  Serious: Yes (Other)
  Sender: FDA-Public Use
  Company Number: NL-SANOFI-SYNTHELABO-A01200800455

PATIENT
  Sex: Male

DRUGS (3)
  1. TEMAZEPAM [Concomitant]
     Dosage: 10 MG
     Route: 048
  2. ELOXATIN [Suspect]
     Indication: COLON CANCER
     Dosage: UNK
     Route: 042
     Dates: start: 20071125, end: 20071128
  3. XELODA [Suspect]
     Route: 048
     Dates: start: 20071125, end: 20071128

REACTIONS (2)
  - ANXIETY [None]
  - DEPRESSION [None]
